FAERS Safety Report 7341178 (Version 2)
Quarter: 2014Q2

REPORT INFORMATION
  Report Type: Spontaneous
  Country: US (occurrence: US)
  Receive Date: 20100401
  Receipt Date: 20140527
  Transmission Date: 20141212
  Serious: Yes (Hospitalization)
  Sender: FDA-Public Use
  Company Number: US-ASTRAZENECA-2010SE13291

PATIENT
  Age: 54 Year
  Sex: Female
  Weight: 80.7 kg

DRUGS (7)
  1. NEXIUM [Suspect]
     Indication: GASTROOESOPHAGEAL REFLUX DISEASE
     Route: 048
  2. NEXIUM [Suspect]
     Indication: GASTROOESOPHAGEAL REFLUX DISEASE
     Route: 048
  3. NEXIUM [Suspect]
     Indication: GASTROOESOPHAGEAL REFLUX DISEASE
     Route: 048
     Dates: start: 20100315, end: 20100325
  4. CRESTOR [Suspect]
     Route: 048
  5. OXYCONTIN [Concomitant]
  6. DARVOCET [Concomitant]
  7. MUSCLE RELAXANT MEDICATION [Concomitant]
     Dosage: THREE TIMES A DAY

REACTIONS (6)
  - Nephrolithiasis [Unknown]
  - Weight decreased [Unknown]
  - Abdominal pain upper [Unknown]
  - Nausea [Unknown]
  - Intentional product misuse [Unknown]
  - Drug ineffective [Unknown]
